FAERS Safety Report 12916277 (Version 1)
Quarter: 2016Q4

REPORT INFORMATION
  Report Type: Spontaneous
  Country: US (occurrence: US)
  Receive Date: 20161107
  Receipt Date: 20161107
  Transmission Date: 20170207
  Serious: No
  Sender: FDA-Public Use
  Company Number: US-BIOGEN-2016BI00313375

PATIENT
  Age: 41 Year
  Sex: Female

DRUGS (1)
  1. TYSABRI [Suspect]
     Active Substance: NATALIZUMAB
     Indication: MULTIPLE SCLEROSIS
     Route: 065
     Dates: start: 20150928

REACTIONS (9)
  - Paraesthesia oral [Unknown]
  - Urinary tract infection [Unknown]
  - Tongue disorder [Unknown]
  - Sensitivity of teeth [Unknown]
  - Glossodynia [Unknown]
  - Burning sensation [Unknown]
  - Hypoaesthesia oral [Unknown]
  - Menstruation irregular [Unknown]
  - Paraesthesia [Unknown]

NARRATIVE: CASE EVENT DATE: 201509
